FAERS Safety Report 23416205 (Version 2)
Quarter: 2025Q2

REPORT INFORMATION
  Report Type: Report from Study
  Country: US (occurrence: US)
  Receive Date: 20240118
  Receipt Date: 20250624
  Transmission Date: 20250716
  Serious: No
  Sender: BIOVITRUM
  Company Number: US-BIOVITRUM-2024-US-000801

PATIENT
  Age: 60 Year
  Sex: Female

DRUGS (2)
  1. DOPTELET [Suspect]
     Active Substance: AVATROMBOPAG MALEATE
     Indication: Thrombocytopenia
     Route: 048
     Dates: start: 202304
  2. DOPTELET [Suspect]
     Active Substance: AVATROMBOPAG MALEATE
     Indication: Hepatic cirrhosis
     Route: 048
     Dates: start: 202304

REACTIONS (3)
  - Off label use [Not Recovered/Not Resolved]
  - Infusion related reaction [Unknown]
  - Headache [Unknown]

NARRATIVE: CASE EVENT DATE: 20230401
